FAERS Safety Report 15753599 (Version 1)
Quarter: 2018Q4

REPORT INFORMATION
  Report Type: Spontaneous
  Country: US (occurrence: US)
  Receive Date: 20181222
  Receipt Date: 20181222
  Transmission Date: 20190205
  Serious: Yes (Death, Other)
  Sender: FDA-Public Use
  Company Number: US-ABBVIE-18K-163-2601642-00

PATIENT
  Age: 63 Year
  Sex: Female

DRUGS (1)
  1. VENETOCLAX. [Suspect]
     Active Substance: VENETOCLAX
     Indication: ACUTE MYELOID LEUKAEMIA
     Route: 048

REACTIONS (6)
  - Death [Fatal]
  - Off label use [Fatal]
  - Intentional product use issue [Fatal]
  - Pyrexia [Unknown]
  - Infection [Unknown]
  - Neutropenia [Unknown]

NARRATIVE: CASE EVENT DATE: 201811
